FAERS Safety Report 17395644 (Version 1)
Quarter: 2020Q1

REPORT INFORMATION
  Report Type: Spontaneous
  Country: FR (occurrence: FR)
  Receive Date: 20200210
  Receipt Date: 20200210
  Transmission Date: 20200409
  Serious: Yes (Other)
  Sender: FDA-Public Use
  Company Number: NVSC2020FR032421

PATIENT
  Age: 73 Year
  Sex: Male

DRUGS (2)
  1. CERITINIB [Suspect]
     Active Substance: CERITINIB
     Indication: PRODUCT USED FOR UNKNOWN INDICATION
     Dosage: UNK (DOSE REDUCTION)
     Route: 065
     Dates: start: 201907
  2. CERITINIB [Suspect]
     Active Substance: CERITINIB
     Dosage: UNK
     Route: 065
     Dates: start: 201911

REACTIONS (3)
  - Renal failure [Unknown]
  - Disease progression [Unknown]
  - Hepatotoxicity [Unknown]
